FAERS Safety Report 8094444-7 (Version None)
Quarter: 2012Q1

REPORT INFORMATION
  Report Type: 
  Country: None (occurrence: None)
  Receive Date: 20120125
  Receipt Date: 20120102
  Transmission Date: 20120608
  Serious: Yes (Death)
  Sender: FDA-Public Use
  Company Number: AUR-APL-2012-00270

PATIENT
  Age: 48 Year
  Sex: Male

DRUGS (6)
  1. GABAPENTIN [Suspect]
     Indication: PRODUCT USED FOR UNKNOWN INDICATION
     Dates: end: 20100101
  2. TRICYCLIC ANTIDEPRESSANT (TRICYLIC ANTIDEPRESSANTS) [Concomitant]
     Indication: PRODUCT USED FOR UNKNOWN INDICATION
     Dates: end: 20100101
  3. BUPROPION HCL [Suspect]
     Indication: PRODUCT USED FOR UNKNOWN INDICATION
     Dates: end: 20100101
  4. ACETAMINOPHEN/HYDROCODONE BITARTRATE [Suspect]
     Indication: PRODUCT USED FOR UNKNOWN INDICATION
     Dates: end: 20100101
  5. METHYLPREDNISOLONE [Suspect]
     Indication: PRODUCT USED FOR UNKNOWN INDICATION
     Dates: end: 20100101
  6. TIOTROPIUM (TIOTROPIUM) [Suspect]
     Indication: PRODUCT USED FOR UNKNOWN INDICATION
     Dates: end: 20100101

REACTIONS (2)
  - TOXICITY TO VARIOUS AGENTS [None]
  - INTENTIONAL DRUG MISUSE [None]
